FAERS Safety Report 4534530-9 (Version None)
Quarter: 2004Q4

REPORT INFORMATION
  Report Type: 
  Country: None (occurrence: None)
  Receive Date: 20041214
  Receipt Date: 20041015
  Transmission Date: 20050328
  Serious: No
  Sender: FDA-Public Use
  Company Number: 2004241154US

PATIENT
  Age: 73 Year
  Sex: Female
  Weight: 47.2 kg

DRUGS (8)
  1. BEXTRA [Suspect]
     Indication: ARTHRITIS
     Dosage: 10 MG, PRN
  2. NEURONTIN [Concomitant]
  3. TYLENOL [Concomitant]
  4. THYROID TAB [Concomitant]
  5. FOSAMAX [Concomitant]
  6. QUININE (QUININE) [Concomitant]
  7. COLCHICINE (COLCHICINE) [Concomitant]
  8. ESTRADERM [Concomitant]

REACTIONS (2)
  - BURSA DISORDER [None]
  - RASH [None]
